FAERS Safety Report 9998217 (Version 1)
Quarter: 2014Q1

REPORT INFORMATION
  Report Type: Spontaneous
  Country: IN (occurrence: IN)
  Receive Date: 20140311
  Receipt Date: 20140311
  Transmission Date: 20141002
  Serious: Yes (Hospitalization)
  Sender: FDA-Public Use
  Company Number: PHHY2014IN029015

PATIENT
  Sex: Male

DRUGS (1)
  1. GLICLAZIDE, METFORMIN [Suspect]
     Indication: DIABETES MELLITUS
     Dosage: 280 MG, 1.5 TABLETS IN THE MORNING, 0.5 IN THE AFTERNOON AND 1.5 TABLETS AT NIGHT
     Route: 048
     Dates: start: 20140213

REACTIONS (6)
  - Hypersensitivity [Recovering/Resolving]
  - Rash generalised [Recovering/Resolving]
  - Burning sensation [Recovering/Resolving]
  - Rash [Recovering/Resolving]
  - Blood glucose increased [Unknown]
  - Poor quality drug administered [Recovering/Resolving]
